FAERS Safety Report 5208208-2 (Version None)
Quarter: 2007Q1

REPORT INFORMATION
  Report Type: 
  Country: None (occurrence: None)
  Receive Date: 20070115
  Receipt Date: 20070108
  Transmission Date: 20070707
  Serious: Yes (Hospitalization)
  Sender: FDA-Public Use
  Company Number: FR-GLAXOSMITHKLINE-B0453790A

PATIENT
  Age: 36 Year
  Sex: Male

DRUGS (4)
  1. AUGMENTIN '125' [Suspect]
     Dosage: 1G TWICE PER DAY
     Dates: start: 20060622, end: 20060628
  2. PANOTILE [Concomitant]
     Route: 065
     Dates: start: 20060622, end: 20060628
  3. SURGAM [Concomitant]
     Route: 048
     Dates: start: 20060622, end: 20060628
  4. DAFALGAN [Concomitant]
     Route: 065
     Dates: start: 20060622, end: 20060628

REACTIONS (5)
  - DERMATITIS EXFOLIATIVE [None]
  - DRUG ERUPTION [None]
  - PRURITUS [None]
  - PYREXIA [None]
  - RASH VESICULAR [None]
